FAERS Safety Report 25815815 (Version 3)
Quarter: 2025Q4

REPORT INFORMATION
  Report Type: Report from Study
  Country: EU (occurrence: EU)
  Receive Date: 20250918
  Receipt Date: 20251003
  Transmission Date: 20260118
  Serious: Yes (Hospitalization, Other)
  Sender: ABBVIE
  Company Number: EU-ABBVIE-6461626

PATIENT
  Age: 70 Year
  Sex: Male

DRUGS (1)
  1. FOSCARBIDOPA\FOSLEVODOPA [Suspect]
     Active Substance: FOSCARBIDOPA\FOSLEVODOPA
     Indication: Parkinson^s disease
     Dosage: BASE SPEED THROUGHOUT THE DAY AND LOW SPEED AT NIGHT
     Route: 058
     Dates: start: 20250423

REACTIONS (5)
  - Investigation abnormal [Not Recovered/Not Resolved]
  - Muscular weakness [Recovering/Resolving]
  - Ketoacidosis [Unknown]
  - Asthenia [Recovering/Resolving]
  - Electrolyte imbalance [Not Recovered/Not Resolved]

NARRATIVE: CASE EVENT DATE: 20250910
